FAERS Safety Report 4827030-X (Version None)
Quarter: 2005Q4

REPORT INFORMATION
  Report Type: 
  Country: None (occurrence: None)
  Receive Date: 20051014
  Receipt Date: 20050816
  Transmission Date: 20060501
  Serious: No
  Sender: FDA-Public Use
  Company Number: 2005SP000637

PATIENT
  Age: 43 Year
  Sex: Male
  Weight: 95.2554 kg

DRUGS (3)
  1. LUNESTA [Suspect]
     Dosage: 2 MG; X1; ORAL
     Route: 048
     Dates: start: 20050507, end: 20050507
  2. REMERON [Concomitant]
  3. GABITRIL [Concomitant]

REACTIONS (3)
  - DECREASED APPETITE [None]
  - DYSGEUSIA [None]
  - VOMITING [None]
